FAERS Safety Report 18793853 (Version 2)
Quarter: 2021Q1

REPORT INFORMATION
  Report Type: Spontaneous
  Country: IT (occurrence: IT)
  Receive Date: 20210127
  Receipt Date: 20210202
  Transmission Date: 20210419
  Serious: Yes (Other)
  Sender: FDA-Public Use
  Company Number: IT-PFIZER INC-2021061358

PATIENT
  Age: 72 Year
  Sex: Female

DRUGS (2)
  1. MEROPENEM. [Suspect]
     Active Substance: MEROPENEM
     Indication: HEPATIC CYST INFECTION
     Dosage: 500 MG, 1X/DAY
     Dates: start: 20201104, end: 20201205
  2. TIGECYCLINE. [Suspect]
     Active Substance: TIGECYCLINE
     Indication: HEPATIC CYST INFECTION
     Dosage: 50 MG, 1X/DAY
     Dates: start: 20201104, end: 20201205

REACTIONS (2)
  - Thrombocytopenia [Recovered/Resolved]
  - Leukopenia [Recovered/Resolved]

NARRATIVE: CASE EVENT DATE: 20201205
